FAERS Safety Report 11617616 (Version 7)
Quarter: 2019Q3

REPORT INFORMATION
  Report Type: Spontaneous
  Country: US (occurrence: US)
  Receive Date: 20151009
  Receipt Date: 20190920
  Transmission Date: 20191004
  Serious: Yes (Death, Hospitalization, Other)
  Sender: FDA-Public Use
  Company Number: US-PFIZER INC-2015335975

PATIENT
  Age: 84 Year
  Sex: Female
  Weight: 50 kg

DRUGS (11)
  1. ATENOLOL. [Concomitant]
     Active Substance: ATENOLOL
     Dosage: 25 MG, UNK
  2. WARFARIN [Concomitant]
     Active Substance: WARFARIN
     Dosage: UNK
  3. FUROSEMIDE. [Concomitant]
     Active Substance: FUROSEMIDE
     Dosage: 20 MG, UNK
     Dates: start: 201405
  4. ALDACTONE [Concomitant]
     Active Substance: SPIRONOLACTONE
     Dosage: UNK
  5. ENALAPRIL MALEATE. [Concomitant]
     Active Substance: ENALAPRIL MALEATE
     Dosage: 10 MG, UNK
  6. MORPHINE [Concomitant]
     Active Substance: MORPHINE
     Indication: PAIN
     Dosage: UNK
  7. REVATIO [Suspect]
     Active Substance: SILDENAFIL CITRATE
     Indication: PULMONARY HYPERTENSION
     Dosage: 60 MG, 3X/DAY
     Route: 048
     Dates: start: 201405
  8. SPIRONOLACTONE. [Concomitant]
     Active Substance: SPIRONOLACTONE
     Dosage: UNK
     Dates: start: 201501
  9. LASIX [Concomitant]
     Active Substance: FUROSEMIDE
     Dosage: 40 MG, DAILY
     Dates: start: 201501
  10. REVATIO [Suspect]
     Active Substance: SILDENAFIL CITRATE
     Dosage: 60 MG, 3X/DAY[AT MORNING, NOON AND NIGHT]
     Route: 048
  11. OPSUMIT [Concomitant]
     Active Substance: MACITENTAN
     Dosage: UNK
     Dates: start: 201507

REACTIONS (11)
  - Cardiac failure congestive [Fatal]
  - Large intestine infection [Recovered/Resolved]
  - Weight decreased [Unknown]
  - Fall [Unknown]
  - Off label use [Unknown]
  - Arthralgia [Unknown]
  - Dyspnoea [Recovering/Resolving]
  - Product use issue [Unknown]
  - Fluid overload [Recovering/Resolving]
  - Dementia [Unknown]
  - Oedema peripheral [Recovering/Resolving]

NARRATIVE: CASE EVENT DATE: 201405
